FAERS Safety Report 4847065-0 (Version None)
Quarter: 2005Q4

REPORT INFORMATION
  Report Type: 
  Country: None (occurrence: None)
  Receive Date: 20051207
  Receipt Date: 20051129
  Transmission Date: 20060501
  Serious: Yes (Other)
  Sender: FDA-Public Use
  Company Number: US-JNJFOC-20040203727

PATIENT
  Sex: Female
  Weight: 46.27 kg

DRUGS (10)
  1. INFLIXIMAB [Suspect]
     Route: 042
  2. INFLIXIMAB [Suspect]
     Route: 042
  3. INFLIXIMAB [Suspect]
     Route: 042
  4. INFLIXIMAB [Suspect]
     Route: 042
  5. INFLIXIMAB [Suspect]
     Route: 042
  6. INFLIXIMAB [Suspect]
     Indication: CROHN'S DISEASE
     Dosage: 5 INFUSIONS PRIOR TO BASLINE
     Route: 042
  7. AZATHIOPRINE [Suspect]
     Indication: CROHN'S DISEASE
  8. ANTIDEPRESSANTS [Suspect]
     Indication: CROHN'S DISEASE
  9. NARCOTIC ANALGESICS [Suspect]
     Indication: CROHN'S DISEASE
  10. PREDNISONE [Concomitant]
     Indication: CROHN'S DISEASE

REACTIONS (1)
  - SQUAMOUS CELL CARCINOMA OF SKIN [None]
